FAERS Safety Report 24637983 (Version 1)
Quarter: 2024Q4

REPORT INFORMATION
  Report Type: Spontaneous
  Country: US (occurrence: US)
  Receive Date: 20241119
  Receipt Date: 20241119
  Transmission Date: 20250114
  Serious: Yes (Other)
  Sender: PFIZER
  Company Number: US-PFIZER INC-PV202400149365

PATIENT
  Age: 90 Year
  Sex: Male
  Weight: 81.633 kg

DRUGS (3)
  1. VYNDAMAX [Suspect]
     Active Substance: TAFAMIDIS
     Indication: Cardiac failure chronic
     Dosage: TAKE 1 CAPSULE BY MOUTH 1 (ONE) TIME EACH DAY
     Route: 048
  2. VYNDAMAX [Suspect]
     Active Substance: TAFAMIDIS
     Indication: Ejection fraction
  3. VYNDAMAX [Suspect]
     Active Substance: TAFAMIDIS
     Indication: Cardiac amyloidosis

REACTIONS (8)
  - Cardiac failure chronic [Unknown]
  - Carpal tunnel syndrome [Recovered/Resolved]
  - Carotid artery stenosis [Unknown]
  - Blood pressure increased [Unknown]
  - Spinal stenosis [Unknown]
  - Hyperlipidaemia [Unknown]
  - Aortic aneurysm [Unknown]
  - Benign prostatic hyperplasia [Unknown]
